FAERS Safety Report 18798732 (Version 2)
Quarter: 2021Q2

REPORT INFORMATION
  Report Type: Spontaneous
  Country: US (occurrence: US)
  Receive Date: 20210128
  Receipt Date: 20210401
  Transmission Date: 20210717
  Serious: Yes (Other)
  Sender: FDA-Public Use
  Company Number: US-GLAXOSMITHKLINE-US2021GSK020003

PATIENT
  Sex: Female

DRUGS (12)
  1. ZANTAC [Suspect]
     Active Substance: RANITIDINE HYDROCHLORIDE
     Indication: DYSPEPSIA
     Dosage: 25 MG PRESCRIPTION
     Route: 065
     Dates: start: 201105, end: 201508
  2. ZANTAC [Suspect]
     Active Substance: RANITIDINE HYDROCHLORIDE
     Dosage: 75 MG
     Route: 065
     Dates: start: 201105, end: 201508
  3. RANITIDINE. [Suspect]
     Active Substance: RANITIDINE
     Dosage: 75 MG
     Route: 065
     Dates: start: 201105, end: 201508
  4. ZANTAC [Suspect]
     Active Substance: RANITIDINE HYDROCHLORIDE
     Indication: DYSPEPSIA
     Dosage: 25 MG PRESCRIPTION
     Route: 065
     Dates: start: 201105, end: 201508
  5. ZANTAC [Suspect]
     Active Substance: RANITIDINE HYDROCHLORIDE
     Dosage: 25 MG PRESCRIPTION
     Route: 065
     Dates: start: 201105, end: 201508
  6. RANITIDINE. [Suspect]
     Active Substance: RANITIDINE
     Dosage: 25 MG PRESCRIPTION
     Route: 065
     Dates: start: 201105, end: 201508
  7. RANITIDINE. [Suspect]
     Active Substance: RANITIDINE
     Indication: DYSPEPSIA
     Dosage: 25 MG PRESCRIPTION
     Route: 065
     Dates: start: 201105, end: 201508
  8. RANITIDINE. [Suspect]
     Active Substance: RANITIDINE
     Dosage: 25 MG PRESCRIPTION
     Route: 065
     Dates: start: 201105, end: 201508
  9. RANITIDINE. [Suspect]
     Active Substance: RANITIDINE
     Indication: DYSPEPSIA
     Dosage: 25 MG PRESCRIPTION
     Route: 065
     Dates: start: 201105, end: 201508
  10. ZANTAC [Suspect]
     Active Substance: RANITIDINE HYDROCHLORIDE
     Dosage: UNK
  11. ZANTAC [Suspect]
     Active Substance: RANITIDINE HYDROCHLORIDE
     Dosage: 75 MG
     Route: 065
     Dates: start: 201105, end: 201508
  12. RANITIDINE. [Suspect]
     Active Substance: RANITIDINE
     Dosage: 75 MG
     Route: 065
     Dates: start: 201105, end: 201508

REACTIONS (1)
  - Colorectal cancer [Unknown]
